FAERS Safety Report 8036800-9 (Version None)
Quarter: 2012Q1

REPORT INFORMATION
  Report Type: 
  Country: None (occurrence: None)
  Receive Date: 20120109
  Receipt Date: 20111230
  Transmission Date: 20120608
  Serious: Yes (Hospitalization)
  Sender: FDA-Public Use
  Company Number: 1000026679

PATIENT
  Age: 42 Year
  Sex: Male

DRUGS (3)
  1. TRAZODONE HCL [Concomitant]
  2. VIIBRYD [Suspect]
     Indication: DEPRESSION
     Dosage: ORAL
     Route: 048
     Dates: start: 20111001
  3. PROPRANOLOL [Concomitant]

REACTIONS (4)
  - ALCOHOL USE [None]
  - INTENTIONAL OVERDOSE [None]
  - INTENTIONAL SELF-INJURY [None]
  - SUICIDE ATTEMPT [None]
